FAERS Safety Report 5959985-4 (Version None)
Quarter: 2008Q4

REPORT INFORMATION
  Report Type: 
  Country: None (occurrence: None)
  Receive Date: 20081120
  Receipt Date: 20081111
  Transmission Date: 20090506
  Serious: Yes (Other)
  Sender: FDA-Public Use
  Company Number: PR-ABBOTT-08P-131-0484637-00

PATIENT
  Sex: Female
  Weight: 71.278 kg

DRUGS (6)
  1. HUMIRA [Suspect]
     Indication: RHEUMATOID ARTHRITIS
     Route: 058
     Dates: start: 20060101, end: 20080908
  2. HUMIRA [Suspect]
     Route: 058
     Dates: start: 20081001
  3. HYDROXYCHLOROQUINE SULFATE [Concomitant]
     Indication: RHEUMATOID ARTHRITIS
     Route: 048
  4. METHOTREXATE [Concomitant]
     Indication: RHEUMATOID ARTHRITIS
     Dosage: 15MG Q SAT.
     Route: 048
  5. TYLOX [Concomitant]
     Indication: PAIN
     Route: 048
  6. LOTREL [Concomitant]
     Indication: HYPERTENSION
     Dosage: 5/10MG
     Route: 048

REACTIONS (2)
  - INFLUENZA [None]
  - VULVAL CANCER [None]
